FAERS Safety Report 13094472 (Version 5)
Quarter: 2017Q4

REPORT INFORMATION
  Report Type: Report from Study
  Country: JP (occurrence: JP)
  Receive Date: 20170106
  Receipt Date: 20171208
  Transmission Date: 20180320
  Serious: Yes (Death, Life-Threatening, Other)
  Sender: FDA-Public Use
  Company Number: JP-BRISTOL-MYERS SQUIBB COMPANY-BMS-2016-112678

PATIENT
  Age: 65 Year
  Sex: Male
  Weight: 61 kg

DRUGS (4)
  1. ELOTUZUMAB. [Suspect]
     Active Substance: ELOTUZUMAB
     Indication: PLASMA CELL MYELOMA
     Dosage: 10 MG/KG, QWK
     Route: 041
     Dates: start: 20161130, end: 20161214
  2. REVLIMID [Suspect]
     Active Substance: LENALIDOMIDE
     Indication: PRODUCT USED FOR UNKNOWN INDICATION
     Dosage: 25 MG, QD
     Route: 048
     Dates: start: 20161130, end: 20161220
  3. DEXAMETHASONE. [Concomitant]
     Active Substance: DEXAMETHASONE
     Indication: PRODUCT USED FOR UNKNOWN INDICATION
     Dosage: 6.6 MG, QWK
     Route: 042
     Dates: start: 20161130, end: 20161214
  4. DEXAMETHASONE. [Concomitant]
     Active Substance: DEXAMETHASONE
     Indication: PRODUCT USED FOR UNKNOWN INDICATION
     Dosage: 28 MG, QWK
     Route: 048
     Dates: start: 20161130, end: 20161214

REACTIONS (3)
  - Condition aggravated [Fatal]
  - Renal impairment [Not Recovered/Not Resolved]
  - Malignant neoplasm progression [Unknown]

NARRATIVE: CASE EVENT DATE: 20161221
